FAERS Safety Report 6359097-4 (Version None)
Quarter: 2009Q3

REPORT INFORMATION
  Report Type: 
  Country: None (occurrence: None)
  Receive Date: 20090917
  Receipt Date: 20071128
  Transmission Date: 20100115
  Serious: Yes (Other)
  Sender: FDA-Public Use
  Company Number: US-ASTRAZENECA-2007UW14363

PATIENT
  Age: 7449 Day
  Sex: Female
  Weight: 52.2 kg

DRUGS (11)
  1. SEROQUEL [Suspect]
     Indication: SLEEP DISORDER
     Dosage: 25 MG DISPENSED
     Route: 048
     Dates: start: 20041008
  2. SEROQUEL [Suspect]
     Route: 048
     Dates: start: 20050411, end: 20060411
  3. WELLBUTRIN SR [Concomitant]
     Dosage: 200 MG DISPENSED
     Dates: start: 20041008
  4. RISPERDAL [Concomitant]
     Dosage: 2 MG DISPENSED
     Dates: start: 20050401
  5. NAPROXEN SODIUM [Concomitant]
     Dosage: 550 MG DISPENSED
     Dates: start: 20041024
  6. LYRICA [Concomitant]
     Dates: start: 20070629
  7. LIPITOR [Concomitant]
     Dates: start: 20070629
  8. OMACOR [Concomitant]
     Route: 048
     Dates: start: 20070101
  9. CRESTOR [Concomitant]
     Dosage: 20-40 MG
     Route: 048
     Dates: start: 20070709
  10. SEASONALE [Concomitant]
     Dates: start: 20070801
  11. INSULIN [Concomitant]
     Dosage: 30, 50 UNITS, TITRATED DOSE
     Dates: start: 20070101

REACTIONS (4)
  - DIABETES MELLITUS INADEQUATE CONTROL [None]
  - DIABETIC KETOACIDOSIS [None]
  - DIABETIC NEUROPATHY [None]
  - TYPE 1 DIABETES MELLITUS [None]
